FAERS Safety Report 6236193-3 (Version None)
Quarter: 2009Q2

REPORT INFORMATION
  Report Type: 
  Country: None (occurrence: None)
  Receive Date: 20090616
  Receipt Date: 20090608
  Transmission Date: 20091009
  Serious: No
  Sender: FDA-Public Use
  Company Number: 2009006796

PATIENT

DRUGS (3)
  1. FENTORA [Suspect]
     Indication: MIGRAINE
     Dosage: BU
  2. OXYCONTIN [Concomitant]
  3. OXYCODONE HCL [Concomitant]

REACTIONS (2)
  - CONTRAINDICATION TO MEDICAL TREATMENT [None]
  - DRUG PRESCRIBING ERROR [None]
